FAERS Safety Report 5271631-4 (Version None)
Quarter: 2007Q1

REPORT INFORMATION
  Report Type: 
  Country: None (occurrence: None)
  Receive Date: 20070321
  Receipt Date: 20070312
  Transmission Date: 20070707
  Serious: Yes (Hospitalization, Other)
  Sender: FDA-Public Use
  Company Number: CA-MERCK-0702CAN00019

PATIENT
  Age: 63 Year
  Sex: Male

DRUGS (4)
  1. COZAAR [Suspect]
     Indication: HYPERTENSION
     Route: 048
     Dates: start: 20061123, end: 20070118
  2. COZAAR [Suspect]
     Route: 048
     Dates: start: 20070118
  3. NORVASC [Concomitant]
     Indication: BLOOD PRESSURE
     Route: 065
     Dates: start: 20060602, end: 20061123
  4. MICARDIS [Concomitant]
     Indication: BLOOD PRESSURE
     Route: 065
     Dates: start: 20050809, end: 20061123

REACTIONS (1)
  - HIP DEFORMITY [None]
